FAERS Safety Report 8558336-9 (Version None)
Quarter: 2012Q3

REPORT INFORMATION
  Report Type: 
  Country: None (occurrence: None)
  Receive Date: 20120801
  Receipt Date: 20120725
  Transmission Date: 20120928
  Serious: Yes (Other)
  Sender: FDA-Public Use
  Company Number: JP-009507513-1207JPN011032

PATIENT

DRUGS (3)
  1. REBETOL [Suspect]
     Route: 048
     Dates: start: 20120220, end: 20120712
  2. TELAPREVIR [Suspect]
     Route: 048
     Dates: start: 20120210, end: 20120503
  3. PEG-INTRON [Suspect]
     Dosage: 100 UNK, QW
     Route: 058
     Dates: start: 20120210, end: 20120628

REACTIONS (1)
  - RASH [None]
